FAERS Safety Report 5192874-4 (Version None)
Quarter: 2006Q4

REPORT INFORMATION
  Report Type: 
  Country: None (occurrence: None)
  Receive Date: 20061228
  Receipt Date: 20060120
  Transmission Date: 20070319
  Serious: No
  Sender: FDA-Public Use
  Company Number: US-GLAXOSMITHKLINE-A0590274A

PATIENT
  Age: 69 Year
  Sex: Male

DRUGS (11)
  1. FLONASE [Suspect]
     Indication: DRUG USE FOR UNKNOWN INDICATION
     Dosage: 1SPR TWICE PER DAY
     Route: 045
     Dates: start: 20051224
  2. ZEMPLAR [Concomitant]
  3. FOLIC ACID [Concomitant]
  4. DEMADEX [Concomitant]
  5. NEPHRO-VITE [Concomitant]
  6. SYNTHROID [Concomitant]
  7. SODIUM BICARBONATE [Concomitant]
  8. ALLOPURINOL SODIUM [Concomitant]
  9. FLOVENT [Concomitant]
     Route: 055
  10. SPIRIVA [Concomitant]
  11. OXYGEN [Concomitant]

REACTIONS (1)
  - EPISTAXIS [None]
